FAERS Safety Report 6085602-1 (Version None)
Quarter: 2009Q1

REPORT INFORMATION
  Report Type: 
  Country: None (occurrence: None)
  Receive Date: 20090220
  Receipt Date: 20090217
  Transmission Date: 20090719
  Serious: Yes (Hospitalization)
  Sender: FDA-Public Use
  Company Number: US-BRISTOL-MYERS SQUIBB COMPANY-14513311

PATIENT
  Age: 48 Year
  Sex: Male

DRUGS (3)
  1. EFAVIRENZ [Suspect]
     Dosage: AT NIGHT
     Route: 048
     Dates: start: 20081210
  2. INDINIVIR SULFATE [Suspect]
     Indication: HIV INFECTION
     Dosage: ON FEB05-09DEC08(600MG/TID),10DEC08-UNK(200MG/TID)ON 10DEC08-UNK(400MG/TID).TOTAL(1800MG/D).CAPS
     Route: 048
     Dates: start: 20030101
  3. VIREAD [Concomitant]
     Dosage: TABS
     Dates: start: 20081210

REACTIONS (3)
  - DEHYDRATION [None]
  - PNEUMONIA [None]
  - RENAL FAILURE [None]
